FAERS Safety Report 17890377 (Version 1)
Quarter: 2020Q2

REPORT INFORMATION
  Report Type: Report from Study
  Country: GB (occurrence: GB)
  Receive Date: 20200612
  Receipt Date: 20200612
  Transmission Date: 20200714
  Serious: Yes (Hospitalization)
  Sender: FDA-Public Use
  Company Number: GB-JNJFOC-20200606557

PATIENT
  Age: 40 Year
  Sex: Female
  Weight: 51.8 kg

DRUGS (1)
  1. ERDAFITINIB. [Suspect]
     Active Substance: ERDAFITINIB
     Indication: NEOPLASM
     Route: 048
     Dates: start: 20200402

REACTIONS (1)
  - Hypercalcaemia [Recovered/Resolved with Sequelae]

NARRATIVE: CASE EVENT DATE: 20200601
